FAERS Safety Report 12541542 (Version 2)
Quarter: 2016Q3

REPORT INFORMATION
  Report Type: Spontaneous
  Country: JP (occurrence: JP)
  Receive Date: 20160708
  Receipt Date: 20160715
  Transmission Date: 20161109
  Serious: Yes (Hospitalization, Other)
  Sender: FDA-Public Use
  Company Number: JP-OTSUKA-2016_015958AA

PATIENT
  Age: 6 Decade
  Sex: Female

DRUGS (6)
  1. SAMSCA [Suspect]
     Active Substance: TOLVAPTAN
     Indication: CONGENITAL CYSTIC KIDNEY DISEASE
     Dosage: 60 MG, DAILY DOSE
     Route: 048
     Dates: start: 20160108, end: 20160128
  2. CRESTOR [Suspect]
     Active Substance: ROSUVASTATIN CALCIUM
     Indication: PRODUCT USED FOR UNKNOWN INDICATION
     Dosage: UNK
     Route: 048
     Dates: start: 20160329, end: 20160419
  3. URSODEOXYCHOLIC ACID [Concomitant]
     Active Substance: URSODIOL
     Indication: PRODUCT USED FOR UNKNOWN INDICATION
     Dosage: 600 MG, DAILY DOSE
     Route: 048
     Dates: start: 20160420
  4. SAMSCA [Suspect]
     Active Substance: TOLVAPTAN
     Dosage: 120 MG, DAILY DOSE
     Route: 048
     Dates: start: 20160329, end: 20160628
  5. DIPHENHYDRAMINE HYDROCHLORIDE. [Concomitant]
     Active Substance: DIPHENHYDRAMINE HYDROCHLORIDE
     Indication: PRODUCT USED FOR UNKNOWN INDICATION
     Dosage: UNK
     Route: 048
     Dates: start: 20160425
  6. SAMSCA [Suspect]
     Active Substance: TOLVAPTAN
     Dosage: 90 MG, DAILY DOSE
     Route: 048
     Dates: start: 20160129, end: 20160328

REACTIONS (3)
  - Jaundice [Recovering/Resolving]
  - Pruritus [Unknown]
  - Glomerular filtration rate decreased [Unknown]

NARRATIVE: CASE EVENT DATE: 20160628
